FAERS Safety Report 7496309-8 (Version None)
Quarter: 2011Q2

REPORT INFORMATION
  Report Type: 
  Country: None (occurrence: None)
  Receive Date: 20110523
  Receipt Date: 20110512
  Transmission Date: 20111010
  Serious: Yes (Other)
  Sender: FDA-Public Use
  Company Number: NL-PFIZER INC-2011107390

PATIENT
  Sex: Male

DRUGS (1)
  1. LYRICA [Suspect]
     Indication: OSTEOARTHRITIS
     Dosage: 150 MG, 3X/DAY
     Dates: start: 20081201, end: 20100101

REACTIONS (3)
  - OSTEOARTHRITIS [None]
  - AMNESIA [None]
  - DISTURBANCE IN ATTENTION [None]
